FAERS Safety Report 15335047 (Version 2)
Quarter: 2018Q3

REPORT INFORMATION
  Report Type: Spontaneous
  Country: US (occurrence: US)
  Receive Date: 20180830
  Receipt Date: 20180914
  Transmission Date: 20181010
  Serious: Yes (Life-Threatening, Hospitalization)
  Sender: FDA-Public Use
  Company Number: US-TEVA-2018-US-948498

PATIENT
  Age: 11 Year
  Sex: Female

DRUGS (1)
  1. IBUPROFEN. [Suspect]
     Active Substance: IBUPROFEN
     Route: 065

REACTIONS (3)
  - Gastritis [Unknown]
  - Tracheal stenosis [Recovering/Resolving]
  - Gastrooesophageal reflux disease [Unknown]
